FAERS Safety Report 26130398 (Version 2)
Quarter: 2025Q4

REPORT INFORMATION
  Report Type: Spontaneous
  Country: US (occurrence: US)
  Receive Date: 20251208
  Receipt Date: 20251209
  Transmission Date: 20260118
  Serious: Yes (Life-Threatening, Hospitalization, Other)
  Sender: PROCTER AND GAMBLE
  Company Number: US-PROCTER+GAMBLE-GS25130178

PATIENT
  Age: 60 Year
  Sex: Female

DRUGS (3)
  1. SALICYLIC ACID [Suspect]
     Active Substance: SALICYLIC ACID
     Route: 061
  2. DEVICE [Suspect]
     Active Substance: DEVICE
     Route: 061
  3. DEVICE [Suspect]
     Active Substance: DEVICE
     Route: 061

REACTIONS (9)
  - Brain injury [Unknown]
  - Wound infection [Unknown]
  - Bacterial infection [Unknown]
  - Wound [Unknown]
  - Suicidal ideation [Unknown]
  - Intentional self-injury [Unknown]
  - Sebaceous gland disorder [Unknown]
  - Neoplasm [Unknown]
  - Dermatillomania [Unknown]
